FAERS Safety Report 7108772-2 (Version None)
Quarter: 2010Q4

REPORT INFORMATION
  Report Type: 
  Country: None (occurrence: None)
  Receive Date: 20101117
  Receipt Date: 20101108
  Transmission Date: 20110411
  Serious: Yes (Hospitalization)
  Sender: FDA-Public Use
  Company Number: FR-SANOFI-AVENTIS-2010SA065375

PATIENT
  Age: 58 Year
  Sex: Female

DRUGS (17)
  1. LASIX [Suspect]
     Route: 048
     Dates: start: 20100617, end: 20100621
  2. LASIX [Interacting]
     Dates: start: 20100622, end: 20100623
  3. LASIX [Interacting]
     Route: 048
     Dates: start: 20100624
  4. CARDENSIEL [Interacting]
     Route: 048
  5. PERINDOPRIL [Interacting]
     Route: 048
  6. LASIX [Concomitant]
     Route: 048
     Dates: end: 20100617
  7. VITAMIN B1 AND B6 [Concomitant]
     Route: 048
  8. RENAGEL [Concomitant]
     Route: 048
     Dates: start: 20100621, end: 20100627
  9. RENAGEL [Concomitant]
     Route: 048
     Dates: start: 20100628
  10. FOLIC ACID [Concomitant]
     Route: 048
  11. AMLOR [Concomitant]
     Route: 048
     Dates: end: 20100617
  12. AMLOR [Concomitant]
     Route: 048
     Dates: start: 20100628
  13. ARANESP [Concomitant]
     Route: 058
  14. LEVOTHYROXINE SODIUM [Concomitant]
     Route: 048
     Dates: end: 20100627
  15. LEVOTHYROXINE SODIUM [Concomitant]
     Route: 048
     Dates: start: 20100628
  16. FERROUS SULFATE [Concomitant]
     Route: 048
  17. KAYEXALATE [Concomitant]
     Route: 048
     Dates: start: 20100621, end: 20100621

REACTIONS (3)
  - DRUG INTERACTION [None]
  - HYPOGLYCAEMIA [None]
  - SYNCOPE [None]
